FAERS Safety Report 12899706 (Version 3)
Quarter: 2016Q4

REPORT INFORMATION
  Report Type: Spontaneous
  Country: US (occurrence: US)
  Receive Date: 20161101
  Receipt Date: 20161207
  Transmission Date: 20170207
  Serious: No
  Sender: FDA-Public Use
  Company Number: US-PFIZER INC-2016503709

PATIENT
  Age: 71 Year
  Sex: Female
  Weight: 68.4 kg

DRUGS (2)
  1. SUTENT [Suspect]
     Active Substance: SUNITINIB MALATE
     Indication: METASTATIC RENAL CELL CARCINOMA
     Dosage: 37.5 MG CAPSULE TAKE FOR 14 DAYS AND THEN OFF FOR 7 DAYS
     Dates: start: 201603, end: 201610
  2. SUTENT [Suspect]
     Active Substance: SUNITINIB MALATE
     Dosage: 37.5 MG, CYCLIC (2 WEEKS ON/1 WEEK OFF)

REACTIONS (4)
  - Blood pressure increased [Recovered/Resolved]
  - Pharyngitis [Recovering/Resolving]
  - Ear infection [Recovering/Resolving]
  - Fatigue [Unknown]

NARRATIVE: CASE EVENT DATE: 201610
